FAERS Safety Report 16157285 (Version 1)
Quarter: 2019Q2

REPORT INFORMATION
  Report Type: Spontaneous
  Country: US (occurrence: US)
  Receive Date: 20190404
  Receipt Date: 20190404
  Transmission Date: 20190711
  Serious: No
  Sender: FDA-Public Use
  Company Number: US-MYLANLABS-2019M1025713

PATIENT

DRUGS (1)
  1. DYMISTA [Suspect]
     Active Substance: AZELASTINE HYDROCHLORIDE\FLUTICASONE PROPIONATE
     Indication: SINUS HEADACHE
     Dosage: UNK

REACTIONS (7)
  - Hypersensitivity [Unknown]
  - Off label use [Unknown]
  - Headache [Unknown]
  - Swelling face [Unknown]
  - Oropharyngeal pain [Unknown]
  - Throat tightness [Unknown]
  - Product taste abnormal [Unknown]
